FAERS Safety Report 4489429-3 (Version None)
Quarter: 2004Q4

REPORT INFORMATION
  Report Type: 
  Country: None (occurrence: None)
  Receive Date: 20041026
  Receipt Date: 20041008
  Transmission Date: 20050328
  Serious: Yes (Life-Threatening, Other)
  Sender: FDA-Public Use
  Company Number: JP_040603501

PATIENT
  Age: 72 Year
  Sex: Female
  Weight: 42 kg

DRUGS (9)
  1. GEMZAR [Suspect]
     Indication: NON-SMALL CELL LUNG CANCER
     Dosage: 1400 MG OTHER
     Dates: start: 20040302, end: 20040601
  2. NAVELBINE [Concomitant]
  3. RADIATION THERAPY [Concomitant]
  4. DICLOFENAC SODIUM [Concomitant]
  5. MORPHINE HYDROCHLORIDE [Concomitant]
  6. PURSENNID [Concomitant]
  7. NAVOBAN (TROPISETRON HYDROCHLORIDE) [Concomitant]
  8. DECADRON [Concomitant]
  9. OXYCONTIN [Concomitant]

REACTIONS (4)
  - GASTRIC ULCER [None]
  - INTERSTITIAL LUNG DISEASE [None]
  - METASTASES TO CENTRAL NERVOUS SYSTEM [None]
  - PULMONARY FIBROSIS [None]
